FAERS Safety Report 5099820-2 (Version None)
Quarter: 2006Q3

REPORT INFORMATION
  Report Type: 
  Country: None (occurrence: None)
  Receive Date: 20060908
  Receipt Date: 20060802
  Transmission Date: 20061208
  Serious: Yes (Hospitalization)
  Sender: FDA-Public Use
  Company Number: JP-MERCK-0608USA03777

PATIENT
  Age: 74 Year
  Sex: Female

DRUGS (4)
  1. PRIMAXIN [Suspect]
     Indication: ENTEROCOLITIS INFECTIOUS
     Route: 065
     Dates: start: 20040621, end: 20040625
  2. CEFOZOPRAN HYDROCHLORIDE [Suspect]
     Route: 065
     Dates: start: 20040705, end: 20040709
  3. CEFOZOPRAN HYDROCHLORIDE [Suspect]
     Route: 065
     Dates: start: 20040714, end: 20040715
  4. NEUTROGIN [Concomitant]
     Route: 065
     Dates: start: 20040621, end: 20040627

REACTIONS (1)
  - CLOSTRIDIUM DIFFICILE COLITIS [None]
